FAERS Safety Report 7005091-X (Version None)
Quarter: 2010Q3

REPORT INFORMATION
  Report Type: 
  Country: None (occurrence: None)
  Receive Date: 20100921
  Receipt Date: 20100910
  Transmission Date: 20110219
  Serious: Yes (Other)
  Sender: FDA-Public Use
  Company Number: PHHY2010US42342

PATIENT
  Age: 67 Year
  Sex: Female
  Weight: 62 kg

DRUGS (1)
  1. RECLAST [Suspect]
     Dosage: 5 MG, ONCE YEARLY
     Route: 042
     Dates: start: 20100621

REACTIONS (4)
  - ARTHRALGIA [None]
  - FREQUENT BOWEL MOVEMENTS [None]
  - NECK PAIN [None]
  - RASH GENERALISED [None]
